FAERS Safety Report 14587303 (Version 1)
Quarter: 2018Q1

REPORT INFORMATION
  Report Type: Spontaneous
  Country: US (occurrence: US)
  Receive Date: 20180228
  Receipt Date: 20180228
  Transmission Date: 20180509
  Serious: Yes (Other)
  Sender: FDA-Public Use
  Company Number: None

PATIENT
  Age: 59 Year
  Sex: Female
  Weight: 47.88 kg

DRUGS (22)
  1. CAPECITABINE. [Suspect]
     Active Substance: CAPECITABINE
     Indication: BREAST CANCER
     Route: 048
     Dates: start: 20180108
  2. OXYCODONE [Concomitant]
     Active Substance: OXYCODONE
  3. NOVOLOG [Concomitant]
     Active Substance: INSULIN ASPART
  4. LIDOCAINE. [Concomitant]
     Active Substance: LIDOCAINE
  5. VITAMIN E [Concomitant]
     Active Substance: .ALPHA.-TOCOPHEROL
  6. GABAPENTIN. [Concomitant]
     Active Substance: GABAPENTIN
  7. ONDANSETRON [Concomitant]
     Active Substance: ONDANSETRON
  8. ASPIRIN. [Concomitant]
     Active Substance: ASPIRIN
  9. VITAMIN D [Concomitant]
     Active Substance: CHOLECALCIFEROL
  10. ZINC SULFATE [Concomitant]
     Active Substance: ZINC SULFATE\ZINC SULFATE ANHYDROUS
  11. VALACYCLOVIR [Concomitant]
     Active Substance: VALACYCLOVIR HYDROCHLORIDE
  12. PROCHLORPERAZINE. [Concomitant]
     Active Substance: PROCHLORPERAZINE
  13. PREDNISONE. [Concomitant]
     Active Substance: PREDNISONE
  14. IBUPROFEN. [Concomitant]
     Active Substance: IBUPROFEN
  15. EXCHINACEA [Concomitant]
  16. GARLIC. [Concomitant]
     Active Substance: GARLIC
  17. PROMETHAZINE [Concomitant]
     Active Substance: PROMETHAZINE\PROMETHAZINE HYDROCHLORIDE
  18. MEGESTROL [Concomitant]
     Active Substance: MEGESTROL
  19. MAGNESIUM [Concomitant]
     Active Substance: MAGNESIUM
  20. OMEPRAZOLE. [Concomitant]
     Active Substance: OMEPRAZOLE
  21. LATANOPROST. [Concomitant]
     Active Substance: LATANOPROST
  22. EXEMESTANE. [Concomitant]
     Active Substance: EXEMESTANE

REACTIONS (1)
  - Ear infection [None]
